FAERS Safety Report 21228905 (Version 2)
Quarter: 2022Q3

REPORT INFORMATION
  Report Type: Report from Study
  Country: US (occurrence: US)
  Receive Date: 20220818
  Receipt Date: 20220829
  Transmission Date: 20221027
  Serious: No
  Sender: FDA-Public Use
  Company Number: US-BIOVITRUM-2022US09627

PATIENT
  Sex: Female

DRUGS (8)
  1. KINERET [Suspect]
     Active Substance: ANAKINRA
     Indication: Rheumatoid arthritis
     Dates: start: 20220801
  2. KINERET [Suspect]
     Active Substance: ANAKINRA
     Dates: start: 20220803
  3. METFORMIN [Concomitant]
     Active Substance: METFORMIN HYDROCHLORIDE
  4. CYMBALTA [Concomitant]
     Active Substance: DULOXETINE HYDROCHLORIDE
  5. SYNTHROID [Concomitant]
     Active Substance: LEVOTHYROXINE SODIUM
  6. ASPIRIN [Concomitant]
     Active Substance: ASPIRIN
  7. MONTELUKAST [Concomitant]
     Active Substance: MONTELUKAST SODIUM
  8. AMLODIPINE [Concomitant]
     Active Substance: AMLODIPINE BESYLATE

REACTIONS (7)
  - Urinary tract infection [Unknown]
  - Somnolence [Unknown]
  - Energy increased [Unknown]
  - Injection site bruising [Unknown]
  - Injection site pain [Unknown]
  - Injection site urticaria [Unknown]
  - Product dose omission issue [Unknown]
